FAERS Safety Report 8985676 (Version 2)
Quarter: 2012Q4

REPORT INFORMATION
  Report Type: Report from Study
  Country: NL (occurrence: NL)
  Receive Date: 20121226
  Receipt Date: 20121229
  Transmission Date: 20130627
  Serious: Yes (Life-Threatening)
  Sender: FDA-Public Use
  Company Number: NL-009507513-1212NLD009345

PATIENT
  Age: 67 Year
  Sex: Female
  Weight: 85 kg

DRUGS (10)
  1. SIMVASTATIN [Suspect]
     Indication: ACUTE CORONARY SYNDROME
     Dosage: 40 mg, UNK
     Route: 048
     Dates: start: 20090410, end: 20120820
  2. INSULIN [Concomitant]
     Dosage: variable
     Route: 058
     Dates: start: 20090114
  3. METFORMIN [Concomitant]
     Dosage: 1000 daily
     Route: 048
     Dates: start: 20090114
  4. ACTONEL [Concomitant]
     Dosage: 35 mg per week
     Route: 048
     Dates: start: 20090114
  5. MONOCEDOCARD [Concomitant]
     Dosage: 25 mg daily
     Route: 048
     Dates: start: 20100304
  6. ASCAL (ASPIRIN CALCIUM) [Concomitant]
     Dosage: 80 mg daily
     Route: 048
     Dates: start: 20090214
  7. METOPROLOL [Concomitant]
     Dosage: 100 mg daily
     Route: 048
     Dates: start: 20090317
  8. CYRESS [Concomitant]
     Dosage: 10 mg daily
     Route: 048
     Dates: start: 20091130
  9. IVABRADINE [Concomitant]
     Dosage: 10, daily
     Route: 048
     Dates: start: 20100301
  10. COAPROVEL [Concomitant]
     Dosage: 150/12.5 mg daily
     Route: 048
     Dates: start: 20101130

REACTIONS (1)
  - Rectal adenocarcinoma [Unknown]
